FAERS Safety Report 8363355-1 (Version None)
Quarter: 2012Q2

REPORT INFORMATION
  Report Type: 
  Country: None (occurrence: None)
  Receive Date: 20120516
  Receipt Date: 20120504
  Transmission Date: 20120825
  Serious: Yes (Other)
  Sender: FDA-Public Use
  Company Number: IT-CELGENEUS-083-21880-12020691

PATIENT
  Sex: Male

DRUGS (6)
  1. AISOSKIN [Concomitant]
     Dosage: 40 MILLIGRAM
     Route: 065
     Dates: start: 20120203
  2. ROCALTROL [Concomitant]
     Dosage: .5 MICROGRAM
     Route: 065
     Dates: start: 20120203
  3. REVLIMID [Suspect]
     Indication: MULTIPLE MYELOMA
     Dosage: 5 MILLIGRAM
     Route: 048
     Dates: start: 20060828, end: 20111020
  4. CALCIUM SANDOZ [Concomitant]
     Dosage: 1 TABLET
     Route: 065
     Dates: start: 20111102
  5. MICARDIS [Concomitant]
     Route: 065
     Dates: start: 20060601
  6. LANOXIN [Concomitant]
     Route: 065
     Dates: start: 20060601

REACTIONS (1)
  - MYELODYSPLASTIC SYNDROME [None]
